FAERS Safety Report 12691147 (Version 1)
Quarter: 2016Q3

REPORT INFORMATION
  Report Type: Spontaneous
  Country: US (occurrence: US)
  Receive Date: 20160826
  Receipt Date: 20160826
  Transmission Date: 20161109
  Serious: Yes (Hospitalization, Other)
  Sender: FDA-Public Use
  Company Number: US-BRISTOL-MYERS SQUIBB COMPANY-BMS-2016-069283

PATIENT
  Age: 87 Year
  Sex: Male
  Weight: 78.91 kg

DRUGS (4)
  1. OPDIVO [Suspect]
     Active Substance: NIVOLUMAB
     Dosage: 271 MG, Q2WK
     Route: 042
     Dates: start: 20160311, end: 20160311
  2. OPDIVO [Suspect]
     Active Substance: NIVOLUMAB
     Indication: METASTATIC RENAL CELL CARCINOMA
     Dosage: 271 MG, Q2WK
     Route: 042
     Dates: start: 20160129
  3. OPDIVO [Suspect]
     Active Substance: NIVOLUMAB
     Dosage: 271 MG, Q2WK
     Route: 042
     Dates: start: 20160212
  4. OPDIVO [Suspect]
     Active Substance: NIVOLUMAB
     Dosage: 271 MG, Q2WK
     Route: 042
     Dates: start: 20160226

REACTIONS (6)
  - Blister [Unknown]
  - Renal impairment [Unknown]
  - Rash pruritic [Unknown]
  - Weight decreased [Unknown]
  - Mucosal inflammation [Unknown]
  - Malnutrition [Unknown]

NARRATIVE: CASE EVENT DATE: 201603
